FAERS Safety Report 5650590-6 (Version None)
Quarter: 2008Q1

REPORT INFORMATION
  Report Type: 
  Country: None (occurrence: None)
  Receive Date: 20080304
  Receipt Date: 20080304
  Transmission Date: 20080703
  Serious: Yes (Hospitalization)
  Sender: FDA-Public Use
  Company Number: None

PATIENT
  Sex: Female
  Weight: 80 kg

DRUGS (1)
  1. VISIPAQUE 320 [Suspect]
     Indication: CATHETERISATION CARDIAC
     Dosage: 175ML  ONCE  IV
     Route: 042
     Dates: start: 20080111, end: 20080228

REACTIONS (8)
  - ALTERED STATE OF CONSCIOUSNESS [None]
  - APHASIA [None]
  - APNOEA [None]
  - BLOOD PRESSURE INCREASED [None]
  - CORNEAL REFLEX DECREASED [None]
  - HEMIPARESIS [None]
  - NIH STROKE SCALE SCORE INCREASED [None]
  - NO THERAPEUTIC RESPONSE [None]
